FAERS Safety Report 9348231 (Version 3)
Quarter: 2013Q3

REPORT INFORMATION
  Report Type: Spontaneous
  Country: DE (occurrence: DE)
  Receive Date: 20130614
  Receipt Date: 20130718
  Transmission Date: 20140515
  Serious: Yes (Hospitalization, Other)
  Sender: FDA-Public Use
  Company Number: DE-AMGEN-DEUSP2013041520

PATIENT
  Age: 65 Year
  Sex: Female
  Weight: 62 kg

DRUGS (18)
  1. PROLIA [Suspect]
     Indication: OSTEOPOROSIS POSTMENOPAUSAL
     Dosage: 60 MG, Q6MO
     Route: 058
     Dates: start: 201209, end: 201303
  2. HEPARIN [Suspect]
  3. ARIXTRA [Concomitant]
     Dosage: 2.5 MG, QD
  4. PARACETAMOL [Concomitant]
     Dosage: 500 MG 2-2-2
  5. VOLTAREN RESINAT [Concomitant]
     Dosage: 75 MG, BID
  6. ALDACTONE                          /00006201/ [Concomitant]
     Dosage: 25 MG QD
  7. BELOC ZOK [Concomitant]
     Indication: HYPERTENSION
     Dosage: 95 MG, UNK
     Route: 048
  8. DIOVAN [Concomitant]
     Dosage: 80 MG, BID
  9. EUTHYROX [Concomitant]
     Indication: HYPOTHYROIDISM
     Dosage: 100 MG, QD
     Route: 048
  10. LYRICA [Concomitant]
     Dosage: 75 MG, BID
  11. MAGNESIUM [Concomitant]
     Dosage: UNK UNK, QD
  12. PANTOZOL                           /01263204/ [Concomitant]
     Dosage: 40 MG, QD
  13. PREDNISOLONE [Concomitant]
     Dosage: 5 MG, QD
     Route: 048
  14. SIMVAHEXAL [Concomitant]
     Dosage: 10 MG QD
  15. TARGIN [Concomitant]
     Dosage: UNK UNK, BID
  16. VIGANTOLETTEN [Concomitant]
     Dosage: 1000 UNK, UNK
     Route: 048
  17. MTX                                /00113801/ [Concomitant]
  18. RITUXIMAB [Concomitant]

REACTIONS (16)
  - Post procedural complication [Unknown]
  - Trendelenburg^s symptom [Unknown]
  - Heparin-induced thrombocytopenia [Unknown]
  - Deep vein thrombosis [Unknown]
  - Pneumonia [Unknown]
  - Muscle abscess [Unknown]
  - Herpes zoster [Unknown]
  - Post herpetic neuralgia [Unknown]
  - Spinal disorder [Unknown]
  - Atrial fibrillation [Unknown]
  - Tachyarrhythmia [Unknown]
  - Poor peripheral circulation [Unknown]
  - Atypical femur fracture [Recovering/Resolving]
  - Blood parathyroid hormone increased [Unknown]
  - Blood alkaline phosphatase increased [Unknown]
  - Pain in extremity [Unknown]
